FAERS Safety Report 23091359 (Version 1)
Quarter: 2023Q4

REPORT INFORMATION
  Report Type: Spontaneous
  Country: CN (occurrence: CN)
  Receive Date: 20231020
  Receipt Date: 20231020
  Transmission Date: 20240110
  Serious: Yes (Other)
  Sender: FDA-Public Use
  Company Number: CN-INSUD PHARMA-2310CN07171

PATIENT

DRUGS (5)
  1. BETAMETHASONE [Suspect]
     Active Substance: BETAMETHASONE
     Indication: Chemical poisoning
     Dosage: 8 MILLIGRAM, QD
     Route: 065
  2. TORSEMIDE [Concomitant]
     Active Substance: TORSEMIDE
     Indication: Chemical poisoning
     Dosage: 20 MILLIGRAM, BID
     Route: 065
  3. ALANYL GLUTAMINE [Concomitant]
     Active Substance: ALANYL GLUTAMINE
     Indication: Chemical poisoning
     Dosage: 10 GRAM, QD
     Route: 065
  4. LANSOPRAZOLE [Concomitant]
     Active Substance: LANSOPRAZOLE
     Indication: Chemical poisoning
     Dosage: 30 MILLIGRAM, BID
     Route: 065
  5. GLUTATHIONE [Concomitant]
     Active Substance: GLUTATHIONE
     Indication: Chemical poisoning
     Dosage: REDUCED, 1.8 GRAM, QD
     Route: 065

REACTIONS (1)
  - Cytotoxic lesions of corpus callosum [Recovered/Resolved]
